FAERS Safety Report 6804767-4 (Version None)
Quarter: 2010Q2

REPORT INFORMATION
  Report Type: 
  Country: None (occurrence: None)
  Receive Date: 20100628
  Receipt Date: 20070509
  Transmission Date: 20101027
  Serious: Yes (Other)
  Sender: FDA-Public Use
  Company Number: US-PFIZER INC-2007037732

PATIENT

DRUGS (4)
  1. GEODON [Suspect]
  2. DEPAKOTE [Suspect]
  3. SEROQUEL [Suspect]
  4. COGENTIN [Suspect]

REACTIONS (3)
  - AGITATION [None]
  - ANXIETY [None]
  - TARDIVE DYSKINESIA [None]
